FAERS Safety Report 9765808 (Version 1)
Quarter: 2013Q4

REPORT INFORMATION
  Report Type: Spontaneous
  Country: US (occurrence: None)
  Receive Date: 20131216
  Receipt Date: 20131216
  Transmission Date: 20140711
  Serious: Yes (Other)
  Sender: FDA-Public Use
  Company Number: None

PATIENT
  Age: 55 Year
  Sex: Male
  Weight: 77.11 kg

DRUGS (2)
  1. ZYRTEC [Suspect]
     Indication: SEASONAL ALLERGY
     Dosage: ONCE DAILY
     Dates: start: 20130301, end: 20130424
  2. ZYRTEC [Suspect]
     Indication: SEASONAL ALLERGY
     Dosage: ONCE DAILY
     Dates: start: 20130301, end: 20130424

REACTIONS (2)
  - Muscle spasms [None]
  - Muscle spasms [None]
